FAERS Safety Report 9013914 (Version 1)
Quarter: 2013Q1

REPORT INFORMATION
  Report Type: Spontaneous
  Country: US (occurrence: None)
  Receive Date: 20130109
  Receipt Date: 20130109
  Transmission Date: 20140127
  Serious: Yes (Other)
  Sender: FDA-Public Use
  Company Number: None

PATIENT
  Age: 31 Year
  Sex: Female
  Weight: 54.43 kg

DRUGS (1)
  1. MIRENA [Suspect]
     Indication: CONTRACEPTION
     Dates: start: 20120715, end: 20121117

REACTIONS (12)
  - Abdominal pain upper [None]
  - Blood potassium decreased [None]
  - Dizziness [None]
  - Muscular weakness [None]
  - Abasia [None]
  - Balance disorder [None]
  - Nausea [None]
  - Dysarthria [None]
  - Nerve injury [None]
  - Endodontic procedure [None]
  - Headache [None]
  - Fatigue [None]
